FAERS Safety Report 21285566 (Version 3)
Quarter: 2022Q4

REPORT INFORMATION
  Report Type: Spontaneous
  Country: DE (occurrence: DE)
  Receive Date: 20220902
  Receipt Date: 20221012
  Transmission Date: 20230112
  Serious: Yes (Hospitalization, Other)
  Sender: FDA-Public Use
  Company Number: None

PATIENT
  Age: 39 Year
  Sex: Female

DRUGS (6)
  1. LETROZOLE [Suspect]
     Active Substance: LETROZOLE
     Indication: Assisted reproductive technology
     Dosage: 5 MG, QD
     Route: 065
     Dates: start: 20220717, end: 20220722
  2. PROGESTERONE [Suspect]
     Active Substance: PROGESTERONE
     Indication: Assisted reproductive technology
     Dosage: 600 MG, QD
     Route: 065
     Dates: start: 20220731, end: 20220814
  3. GANIRELIX ACETATE [Suspect]
     Active Substance: GANIRELIX ACETATE
     Indication: Assisted reproductive technology
     Dosage: UNK UNK, QD, 0.25 (DAILY)
     Route: 065
     Dates: start: 20220727, end: 20220727
  4. ASPIRIN [Suspect]
     Active Substance: ASPIRIN
     Indication: Assisted reproductive technology
     Dosage: 100 MG, QD
     Route: 065
     Dates: start: 20220801, end: 20220814
  5. CHORIONIC GONADOTROPHIN [Suspect]
     Active Substance: CHORIOGONADOTROPIN ALFA
     Indication: Assisted reproductive technology
     Dosage: UNK
     Route: 065
  6. CHORIOGONADOTROPIN ALFA [Suspect]
     Active Substance: CHORIOGONADOTROPIN ALFA
     Indication: Assisted reproductive technology
     Dosage: 250 INTERNATIONAL UNIT, ONCE/SINGLE
     Route: 065
     Dates: start: 20220727, end: 20220727

REACTIONS (1)
  - Ovarian hyperstimulation syndrome [Recovered/Resolved]

NARRATIVE: CASE EVENT DATE: 20220810
